FAERS Safety Report 20930305 (Version 1)
Quarter: 2022Q2

REPORT INFORMATION
  Report Type: Report from Study
  Country: CH (occurrence: CH)
  Receive Date: 20220608
  Receipt Date: 20220608
  Transmission Date: 20220721
  Serious: Yes (Hospitalization)
  Sender: FDA-Public Use
  Company Number: CH-ABBVIE-22K-151-4421953-00

PATIENT
  Sex: Male

DRUGS (2)
  1. CARBIDOPA\LEVODOPA [Suspect]
     Active Substance: CARBIDOPA\LEVODOPA
     Indication: Parkinson^s disease
     Dosage: 1 CASSETTE /DAY
     Route: 050
     Dates: start: 201908
  2. CARBIDOPA\LEVODOPA [Suspect]
     Active Substance: CARBIDOPA\LEVODOPA
     Dosage: MD: 4 ML, CRD: 5.5 ML/H, CRN: 1.9 ML/H, ED: 1.0 ML /1 CASSETTE /DAY?24 H THERAPY
     Route: 050
     Dates: start: 20210315

REACTIONS (2)
  - Femur fracture [Unknown]
  - Fall [Unknown]
